FAERS Safety Report 7679944 (Version 2)
Quarter: 2012Q4

REPORT INFORMATION
  Report Type: 
  Country: MX (occurrence: MX)
  Receive Date: 20101123
  Receipt Date: 20121024
  Transmission Date: 20130627
  Serious: Yes (Hospitalization, Other)
  Sender: FDA-Public Use
  Company Number: PHHY2010MX76338

PATIENT
  Age: 96 Year
  Sex: Female

DRUGS (2)
  1. EXFORGE [Suspect]
     Indication: HYPERTENSION
     Dosage: 1 DF (160/5 mg), daily
  2. ALEVIAN DUO [Concomitant]
     Indication: BOWEL MOVEMENT IRREGULARITY
     Dosage: 2 DF, daily

REACTIONS (3)
  - Fall [Recovered/Resolved]
  - Skeletal injury [Recovered/Resolved]
  - Hypoacusis [Not Recovered/Not Resolved]
